FAERS Safety Report 4344796-6 (Version None)
Quarter: 2004Q2

REPORT INFORMATION
  Report Type: 
  Country: None (occurrence: None)
  Receive Date: 20040420
  Receipt Date: 20040407
  Transmission Date: 20050107
  Serious: Yes (Other)
  Sender: FDA-Public Use
  Company Number: US-JNJFOC-20040401715

PATIENT
  Age: 57 Year
  Sex: Female
  Weight: 53.5244 kg

DRUGS (7)
  1. REMICADE [Suspect]
     Indication: RHEUMATOID ARTHRITIS
     Dosage: 600 MG, INTRAVENOUS
     Route: 042
     Dates: start: 20040212
  2. IMURAN [Concomitant]
  3. PLAQUENIL [Concomitant]
  4. ACTONEL [Concomitant]
  5. CALCIUM (CALCIUM) [Concomitant]
  6. VITAMINS (VITAMINS) [Concomitant]
  7. SELDANE [Concomitant]

REACTIONS (5)
  - FOOT DEFORMITY [None]
  - HYPERKERATOSIS [None]
  - JOINT DISLOCATION [None]
  - PAIN IN EXTREMITY [None]
  - TOE DEFORMITY [None]
